FAERS Safety Report 22610363 (Version 1)
Quarter: 2023Q2

REPORT INFORMATION
  Report Type: Spontaneous
  Country: US (occurrence: US)
  Receive Date: 20230616
  Receipt Date: 20230616
  Transmission Date: 20230722
  Serious: Yes (Hospitalization, Disabling, Other)
  Sender: FDA-Public Use
  Company Number: US-AMGEN-USASP2023100854

PATIENT
  Sex: Female

DRUGS (4)
  1. PROLIA [Suspect]
     Active Substance: DENOSUMAB
     Indication: Product used for unknown indication
     Dosage: 60 MILLIGRAM, Q6MO
     Route: 058
  2. FOSAMAX [Concomitant]
     Active Substance: ALENDRONATE SODIUM
  3. BACLOFEN [Concomitant]
     Active Substance: BACLOFEN
  4. HYDROCODONE [Concomitant]
     Active Substance: HYDROCODONE

REACTIONS (9)
  - Arthralgia [Not Recovered/Not Resolved]
  - Pelvic fracture [Not Recovered/Not Resolved]
  - Knee arthroplasty [Not Recovered/Not Resolved]
  - Spinal fracture [Not Recovered/Not Resolved]
  - Intervertebral disc disorder [Not Recovered/Not Resolved]
  - Bone disorder [Not Recovered/Not Resolved]
  - Product dose omission issue [Unknown]
  - Paraesthesia [Not Recovered/Not Resolved]
  - Dermatitis [Not Recovered/Not Resolved]
